FAERS Safety Report 24215052 (Version 1)
Quarter: 2024Q3

REPORT INFORMATION
  Report Type: Spontaneous
  Country: CA (occurrence: CA)
  Receive Date: 20240816
  Receipt Date: 20240816
  Transmission Date: 20241017
  Serious: Yes (Other)
  Sender: PFIZER
  Company Number: CA-PFIZER INC-202400235779

PATIENT
  Age: 77 Year
  Sex: Male

DRUGS (1)
  1. RUXIENCE [Suspect]
     Active Substance: RITUXIMAB-PVVR
     Indication: Rheumatoid arthritis
     Dosage: 1000 MG, EVERY  MONTH SINGLE DOSE EVERY 6 MONTHS
     Route: 042
     Dates: start: 20240509

REACTIONS (2)
  - Bronchiectasis [Unknown]
  - Hypoacusis [Unknown]
